FAERS Safety Report 11685254 (Version 5)
Quarter: 2016Q1

REPORT INFORMATION
  Report Type: Report from Study
  Country: DE (occurrence: DE)
  Receive Date: 20151030
  Receipt Date: 20160331
  Transmission Date: 20160525
  Serious: Yes (Other)
  Sender: FDA-Public Use
  Company Number: DE-ROCHE-1650105

PATIENT
  Age: 75 Year
  Sex: Male
  Weight: 76 kg

DRUGS (8)
  1. MIRTAZAPIN [Concomitant]
     Active Substance: MIRTAZAPINE
     Indication: DEPRESSION
     Route: 048
  2. NASONEX [Concomitant]
     Active Substance: MOMETASONE FUROATE
     Indication: NASAL CONGESTION
     Route: 045
  3. ESBRIET [Suspect]
     Active Substance: PIRFENIDONE
     Indication: IDIOPATHIC PULMONARY FIBROSIS
     Route: 048
     Dates: start: 20141203
  4. NOVOPULMON [Suspect]
     Active Substance: BUDESONIDE
     Indication: PRODUCT USED FOR UNKNOWN INDICATION
     Route: 065
  5. MARCUMAR [Concomitant]
     Active Substance: PHENPROCOUMON
     Indication: CORONARY ARTERY DISEASE
     Dosage: DEPENCE ON PROTHOMBIN TIME
     Route: 048
  6. HIZENTRA [Concomitant]
     Active Substance: HUMAN IMMUNOGLOBULIN G
  7. ACETYLSALICYLSAURE [Concomitant]
     Indication: CORONARY ARTERY DISEASE
     Route: 048
  8. CORTISONE [Suspect]
     Active Substance: CORTISONE\HYDROCORTISONE
     Indication: PRODUCT USED FOR UNKNOWN INDICATION
     Route: 065

REACTIONS (14)
  - Carotid artery stenosis [Unknown]
  - Pneumonia [Unknown]
  - Carbon dioxide increased [Unknown]
  - Headache [Unknown]
  - Pain in extremity [Unknown]
  - Oral candidiasis [Unknown]
  - Dysgeusia [Unknown]
  - Productive cough [Unknown]
  - Rash pustular [Unknown]
  - Pruritus [Unknown]
  - Erythema [Unknown]
  - PO2 decreased [Unknown]
  - Infection [Recovering/Resolving]
  - Weight decreased [Unknown]

NARRATIVE: CASE EVENT DATE: 20151022
